FAERS Safety Report 11630612 (Version 4)
Quarter: 2015Q4

REPORT INFORMATION
  Report Type: Spontaneous
  Country: DK (occurrence: DK)
  Receive Date: 20151014
  Receipt Date: 20151027
  Transmission Date: 20160304
  Serious: Yes (Hospitalization, Disabling)
  Sender: FDA-Public Use
  Company Number: DK-BAXTER-2015BAX054461

PATIENT
  Age: 51 Year
  Sex: Female

DRUGS (6)
  1. METRONIDAZOL BAXTER VIAFLO [Suspect]
     Active Substance: METRONIDAZOLE
     Indication: INFECTION PROPHYLAXIS
     Dosage: TOTAL OF 6 TIMES
     Route: 042
     Dates: start: 20111011, end: 20111011
  2. PENICILLIN [Suspect]
     Active Substance: PENICILLIN
     Indication: INFECTION PROPHYLAXIS
     Route: 042
     Dates: start: 20111011, end: 20111011
  3. VEPICOMBIN NOVUM [Concomitant]
     Active Substance: PENICILLIN V POTASSIUM
     Indication: INFECTION
     Route: 048
     Dates: start: 20111024, end: 20111031
  4. CIPRAMIL [Concomitant]
     Active Substance: CITALOPRAM HYDROBROMIDE
     Indication: DEPRESSION
     Route: 065
     Dates: start: 2009
  5. METRONIDAZOLE. [Suspect]
     Active Substance: METRONIDAZOLE
     Indication: INFECTION
     Route: 048
     Dates: start: 20111024, end: 20111031
  6. ANTABUSE [Suspect]
     Active Substance: DISULFIRAM
     Indication: ALCOHOL ABUSE
     Route: 048
     Dates: start: 201108

REACTIONS (3)
  - Small fibre neuropathy [Not Recovered/Not Resolved]
  - Localised infection [Unknown]
  - Suicidal ideation [Unknown]

NARRATIVE: CASE EVENT DATE: 201111
